FAERS Safety Report 10034150 (Version 1)
Quarter: 2014Q1

REPORT INFORMATION
  Report Type: Spontaneous
  Country: US (occurrence: None)
  Receive Date: 20140324
  Receipt Date: 20140324
  Transmission Date: 20141002
  Serious: Yes (Hospitalization)
  Sender: FDA-Public Use
  Company Number: None

PATIENT
  Age: 78 Year
  Sex: Female

DRUGS (1)
  1. ANASTROZOLE, 1 MG [Suspect]
     Dosage: 1 MG TAKE 1 DAILY  DAILY ORAL
     Route: 048
     Dates: start: 20101215

REACTIONS (1)
  - Dyspnoea [None]
